FAERS Safety Report 18203459 (Version 1)
Quarter: 2020Q3

REPORT INFORMATION
  Report Type: Spontaneous
  Country: US (occurrence: US)
  Receive Date: 20200827
  Receipt Date: 20200827
  Transmission Date: 20201103
  Serious: Yes (Congenital Anomaly, Other)
  Sender: FDA-Public Use
  Company Number: NVSC2020US234509

PATIENT
  Sex: Male

DRUGS (1)
  1. ZOFRAN [Suspect]
     Active Substance: ONDANSETRON HYDROCHLORIDE
     Indication: FOETAL EXPOSURE DURING PREGNANCY
     Route: 064

REACTIONS (10)
  - Emotional distress [Unknown]
  - Ventricular septal defect [Unknown]
  - Transposition of the great vessels [Unknown]
  - Pulmonary artery stenosis congenital [Unknown]
  - Congenital vesicoureteric reflux [Unknown]
  - Injury [Unknown]
  - Pain [Unknown]
  - Anxiety [Unknown]
  - Foetal exposure during pregnancy [Unknown]
  - Vitello-intestinal duct remnant [Unknown]
